FAERS Safety Report 9625069 (Version 1)
Quarter: 2013Q4

REPORT INFORMATION
  Report Type: Spontaneous
  Country: US (occurrence: None)
  Receive Date: 20131015
  Receipt Date: 20131015
  Transmission Date: 20140711
  Serious: Yes (Death)
  Sender: FDA-Public Use
  Company Number: None

PATIENT
  Age: 81 Year
  Sex: Male

DRUGS (2)
  1. XTANDI [Suspect]
     Indication: HEPATIC CANCER
     Dosage: 40 MG, 4 QOM, PO
     Route: 048
     Dates: start: 201302, end: 201308
  2. XTANDI [Suspect]
     Indication: PROSTATE CANCER
     Dosage: 40 MG, 4 QOM, PO
     Route: 048
     Dates: start: 201302, end: 201308

REACTIONS (2)
  - Malignant neoplasm progression [None]
  - Hepatic cancer [None]
